FAERS Safety Report 6164445-4 (Version None)
Quarter: 2009Q2

REPORT INFORMATION
  Report Type: 
  Country: None (occurrence: None)
  Receive Date: 20090421
  Receipt Date: 20090409
  Transmission Date: 20091009
  Serious: Yes (Hospitalization, Other)
  Sender: FDA-Public Use
  Company Number: 2009AP001471

PATIENT
  Age: 72 Year
  Sex: Female

DRUGS (3)
  1. FAMOTIDINE [Suspect]
     Dosage: 20 MG;
  2. ESOMEPRAZOLE [Suspect]
     Dosage: 40 MG;
  3. HERBAL PREPARATION [Suspect]

REACTIONS (18)
  - ABDOMINAL DISCOMFORT [None]
  - ABDOMINAL PAIN UPPER [None]
  - ANAEMIA VITAMIN B12 DEFICIENCY [None]
  - ASTHENIA [None]
  - BLOOD ALBUMIN DECREASED [None]
  - CEREBRAL ATROPHY [None]
  - CONFUSIONAL STATE [None]
  - DELIRIUM [None]
  - DEMENTIA [None]
  - DEPRESSION [None]
  - DRUG INTERACTION [None]
  - EATING DISORDER [None]
  - ECHOLALIA [None]
  - GAIT DISTURBANCE [None]
  - IRON DEFICIENCY ANAEMIA [None]
  - PALLOR [None]
  - PROTEIN TOTAL DECREASED [None]
  - SINUS TACHYCARDIA [None]
